FAERS Safety Report 11887007 (Version 2)
Quarter: 2016Q1

REPORT INFORMATION
  Report Type: Spontaneous
  Country: US (occurrence: US)
  Receive Date: 20160104
  Receipt Date: 20160201
  Transmission Date: 20160526
  Serious: Yes (Other)
  Sender: FDA-Public Use
  Company Number: US-PFIZER INC-2015461964

PATIENT
  Age: 21 Year
  Sex: Male
  Weight: 75 kg

DRUGS (2)
  1. BENEFIX [Suspect]
     Active Substance: COAGULATION FACTOR IX RECOMBINANT HUMAN\ISOPROPYL ALCOHOL
     Indication: FACTOR IX DEFICIENCY
     Dosage: 4000 IU, WEEKLY
     Route: 042
     Dates: start: 199505
  2. BENEFIX [Suspect]
     Active Substance: COAGULATION FACTOR IX RECOMBINANT HUMAN\ISOPROPYL ALCOHOL
     Dosage: 4000 IU, AS NEEDED
     Route: 042

REACTIONS (7)
  - Swelling [Not Recovered/Not Resolved]
  - Haemorrhage [Not Recovered/Not Resolved]
  - Soft tissue swelling [Unknown]
  - Drug dose omission [Unknown]
  - Contusion [Not Recovered/Not Resolved]
  - Limb injury [Unknown]
  - Pain [Not Recovered/Not Resolved]
